FAERS Safety Report 25747306 (Version 1)
Quarter: 2025Q3

REPORT INFORMATION
  Report Type: Spontaneous
  Country: SG (occurrence: SG)
  Receive Date: 20250901
  Receipt Date: 20250901
  Transmission Date: 20251021
  Serious: Yes (Hospitalization, Other)
  Sender: TAKEDA
  Company Number: SG-JNJFOC-20250825494

PATIENT
  Age: 55 Year
  Sex: Male

DRUGS (4)
  1. VELCADE [Suspect]
     Active Substance: BORTEZOMIB
     Indication: Amyloidosis
  2. DEXAMETHASONE [Suspect]
     Active Substance: DEXAMETHASONE
     Indication: Amyloidosis
  3. DARZALEX [Suspect]
     Active Substance: DARATUMUMAB
     Indication: Amyloidosis
  4. CYCLOPHOSPHAMIDE [Suspect]
     Active Substance: CYCLOPHOSPHAMIDE
     Indication: Amyloidosis

REACTIONS (10)
  - Intestinal perforation [Unknown]
  - Cytomegalovirus infection reactivation [Unknown]
  - Ischaemic hepatitis [Unknown]
  - Oesophageal haemorrhage [Unknown]
  - Klebsiella bacteraemia [Unknown]
  - Oliguria [Unknown]
  - Portal vein thrombosis [Unknown]
  - Diarrhoea [Recovered/Resolved]
  - Hypotension [Unknown]
  - Off label use [Unknown]
